FAERS Safety Report 7159512-2 (Version None)
Quarter: 2010Q4

REPORT INFORMATION
  Report Type: 
  Country: None (occurrence: None)
  Receive Date: 20101214
  Receipt Date: 20100914
  Transmission Date: 20110411
  Serious: No
  Sender: FDA-Public Use
  Company Number: US-ASTRAZENECA-2010SE43264

PATIENT
  Age: 66 Year
  Sex: Male

DRUGS (12)
  1. CRESTOR [Suspect]
     Indication: BLOOD CHOLESTEROL INCREASED
     Route: 048
     Dates: start: 20080101
  2. NIASPAN [Suspect]
     Indication: BLOOD CHOLESTEROL INCREASED
     Route: 048
     Dates: start: 20090101
  3. RED YEAST RICE [Concomitant]
  4. MULTIPLE VITAMINS [Concomitant]
  5. POTASSIUM GLUCONATE TAB [Concomitant]
  6. MAGNESIUM [Concomitant]
  7. HERBAL SUPPLEMENTS [Concomitant]
  8. HYDROXOCOBALAMIN [Concomitant]
  9. ATENOLOL [Concomitant]
  10. ACETYLSALICYLIC ACID [Concomitant]
  11. COLESTIPOL HYDROCHLORIDE [Concomitant]
  12. FOLIC ACID [Concomitant]

REACTIONS (2)
  - MUSCULAR WEAKNESS [None]
  - NECK PAIN [None]
